FAERS Safety Report 8797547 (Version 1)
Quarter: 2012Q4

REPORT INFORMATION
  Report Type: 
  Country: US (occurrence: US)
  Receive Date: 20120920
  Receipt Date: 20120920
  Transmission Date: 20130627
  Serious: No
  Sender: FDA-Public Use
  Company Number: US-PFIZER INC-2012231086

PATIENT
  Sex: Female

DRUGS (4)
  1. LOPID [Suspect]
     Indication: BLOOD CHOLESTEROL INCREASED
     Dosage: 600 mg, daily
     Route: 048
     Dates: end: 20120915
  2. ALTACE [Concomitant]
     Indication: HYPERTENSION
     Dosage: 10 mg, daily
  3. LASIX [Concomitant]
     Indication: FLUID RETENTION
     Dosage: (20 to 40 mg ), UNK
  4. LASIX [Concomitant]
     Indication: NEPHROLITHIASIS

REACTIONS (1)
  - Tenderness [Recovered/Resolved]
